FAERS Safety Report 21279287 (Version 1)
Quarter: 2022Q3

REPORT INFORMATION
  Report Type: Spontaneous
  Country: US (occurrence: US)
  Receive Date: 20220901
  Receipt Date: 20220901
  Transmission Date: 20221026
  Serious: No
  Sender: FDA-Public Use
  Company Number: US-AMGEN-USASP2022148838

PATIENT

DRUGS (2)
  1. XGEVA [Interacting]
     Active Substance: DENOSUMAB
     Indication: Bone cancer
     Dosage: UNK
     Route: 065
  2. IBRANCE [Interacting]
     Active Substance: PALBOCICLIB
     Indication: Bone cancer
     Dosage: 125 MILLIGRAM
     Route: 065

REACTIONS (1)
  - Drug interaction [Unknown]
